FAERS Safety Report 8181395-2 (Version None)
Quarter: 2012Q1

REPORT INFORMATION
  Report Type: 
  Country: None (occurrence: None)
  Receive Date: 20120302
  Receipt Date: 20120221
  Transmission Date: 20120608
  Serious: No
  Sender: FDA-Public Use
  Company Number: US-B.I. PHARMACEUTICALS,INC./RIDGEFIELD-2010-BP-14181BP

PATIENT
  Sex: Female

DRUGS (18)
  1. DILTIAZEM HCL [Concomitant]
     Indication: HYPERTENSION
     Route: 048
     Dates: start: 20050101
  2. MULTI-VITAMIN [Concomitant]
     Indication: SUPPLEMENTATION THERAPY
  3. ZOCOR [Concomitant]
     Indication: BLOOD CHOLESTEROL INCREASED
     Dosage: 20 MG
     Route: 048
     Dates: start: 20070101
  4. MELOXICAM [Concomitant]
     Indication: ARTHRITIS
     Dosage: 7.5 MG
     Route: 048
     Dates: start: 20100601
  5. FISH OIL [Concomitant]
     Indication: SUPPLEMENTATION THERAPY
  6. MAGNESIUM [Concomitant]
     Indication: BLOOD MAGNESIUM DECREASED
  7. ASPIRIN [Concomitant]
     Indication: PROPHYLAXIS
     Dosage: 81 MG
     Route: 048
     Dates: start: 20020101
  8. MAGNESIUM SULFATE [Concomitant]
     Indication: SUPPLEMENTATION THERAPY
     Dosage: 400 MG
     Route: 048
     Dates: start: 20100101
  9. DIOVAN HCT [Concomitant]
     Indication: HYPERTENSION
  10. FISH OIL [Concomitant]
     Indication: PROPHYLAXIS
  11. BIOTIN [Concomitant]
     Indication: PROPHYLAXIS
  12. PRADAXA [Suspect]
     Indication: ATRIAL FIBRILLATION
     Dosage: 300 MG
     Route: 048
     Dates: start: 20101101, end: 20120109
  13. DIOVAN HCT [Concomitant]
     Indication: ATRIAL FIBRILLATION
     Route: 048
     Dates: start: 20050101
  14. FLECAINIDE ACETATE [Concomitant]
     Indication: ATRIAL FIBRILLATION
     Dosage: 200 MG
     Route: 048
     Dates: start: 20070101
  15. MULTI-VITAMIN [Concomitant]
     Indication: PROPHYLAXIS
     Route: 048
     Dates: start: 20070101
  16. SYNTHROID [Concomitant]
     Indication: HYPOTHYROIDISM
  17. SYNTHROID [Concomitant]
     Indication: THYROID DISORDER
  18. CATAPRES [Concomitant]
     Indication: HYPERTENSION
     Route: 061
     Dates: start: 20090101

REACTIONS (2)
  - CONTUSION [None]
  - OCULAR HYPERAEMIA [None]
